FAERS Safety Report 7605300-X (Version None)
Quarter: 2011Q3

REPORT INFORMATION
  Report Type: 
  Country: None (occurrence: None)
  Receive Date: 20110713
  Receipt Date: 20110713
  Transmission Date: 20111222
  Serious: Yes (Other)
  Sender: FDA-Public Use
  Company Number: CA-ROXANE LABORATORIES, INC.-2011-DE-02006GD

PATIENT
  Sex: Female

DRUGS (2)
  1. THALIDOMIDE [Suspect]
     Indication: TYPE 2 LEPRA REACTION
     Dosage: 100 MG
  2. PREDNISONE [Suspect]
     Indication: TYPE 2 LEPRA REACTION
     Dosage: 40-80 MG

REACTIONS (6)
  - DRUG EFFECT DECREASED [None]
  - DEEP VEIN THROMBOSIS [None]
  - OSTEOPOROTIC FRACTURE [None]
  - CUSHINGOID [None]
  - HYPERTENSION [None]
  - SOFT TISSUE INFECTION [None]
